FAERS Safety Report 5460748-7 (Version None)
Quarter: 2007Q3

REPORT INFORMATION
  Report Type: 
  Country: None (occurrence: None)
  Receive Date: 20070918
  Receipt Date: 20070907
  Transmission Date: 20080115
  Serious: Yes (Death, Hospitalization)
  Sender: FDA-Public Use
  Company Number: 430001M07FRA

PATIENT
  Age: 71 Year
  Sex: Male

DRUGS (3)
  1. NOVANTRONE [Suspect]
     Indication: PROSTATE CANCER METASTATIC
     Dosage: INTRAVENOUS
     Route: 042
     Dates: start: 20051101, end: 20070101
  2. DECAPEPTYL (GONADORELIN) [Concomitant]
  3. ZOMETA [Concomitant]

REACTIONS (7)
  - CARDIAC FAILURE [None]
  - INTERSTITIAL LUNG DISEASE [None]
  - LUNG INFECTION PSEUDOMONAL [None]
  - MULTI-ORGAN FAILURE [None]
  - RENAL FAILURE [None]
  - RESPIRATORY FAILURE [None]
  - STENOTROPHOMONAS INFECTION [None]
